FAERS Safety Report 5124299-1 (Version None)
Quarter: 2006Q3

REPORT INFORMATION
  Report Type: 
  Country: None (occurrence: None)
  Receive Date: 20060816
  Receipt Date: 20060607
  Transmission Date: 20061208
  Serious: No
  Sender: FDA-Public Use
  Company Number: US200605001401

PATIENT
  Age: 77 Year
  Sex: Male

DRUGS (6)
  1. CIALIS [Suspect]
     Indication: ERECTILE DYSFUNCTION
     Dosage: 10 MG
     Dates: start: 20060503, end: 20060504
  2. LISINOPRIL [Concomitant]
  3. NORVASC [Concomitant]
  4. ATENOLOL [Concomitant]
  5. CITALOPRAM HYDROBROMIDE [Concomitant]
  6. ATIVAN [Concomitant]

REACTIONS (6)
  - BLOOD PRESSURE INCREASED [None]
  - DRUG INEFFECTIVE [None]
  - FEELING HOT [None]
  - HEADACHE [None]
  - HEART RATE INCREASED [None]
  - NAUSEA [None]
